FAERS Safety Report 5657230-0 (Version None)
Quarter: 2008Q1

REPORT INFORMATION
  Report Type: 
  Country: None (occurrence: None)
  Receive Date: 20080307
  Receipt Date: 20080307
  Transmission Date: 20080703
  Serious: Yes (Death)
  Sender: FDA-Public Use
  Company Number: None

PATIENT
  Sex: Female
  Weight: 84.8226 kg

DRUGS (1)
  1. CAPECITABINE [Suspect]
     Indication: BREAST CANCER
     Dosage: 1650 MG BID ORALLY
     Route: 048
     Dates: start: 20080204, end: 20080303

REACTIONS (16)
  - BLOOD GLUCOSE DECREASED [None]
  - BLOOD LACTIC ACID INCREASED [None]
  - BLOOD PRESSURE INCREASED [None]
  - BODY TEMPERATURE DECREASED [None]
  - CARDIAC ARREST [None]
  - DIARRHOEA [None]
  - DYSARTHRIA [None]
  - DYSPNOEA [None]
  - HEART RATE INCREASED [None]
  - HEART SOUNDS ABNORMAL [None]
  - NAUSEA [None]
  - PAIN [None]
  - PRODUCTIVE COUGH [None]
  - PUPIL FIXED [None]
  - UNRESPONSIVE TO STIMULI [None]
  - VOMITING [None]
